FAERS Safety Report 8304500-3 (Version None)
Quarter: 2012Q2

REPORT INFORMATION
  Report Type: 
  Country: None (occurrence: None)
  Receive Date: 20120423
  Receipt Date: 20120410
  Transmission Date: 20120825
  Serious: Yes (Hospitalization)
  Sender: FDA-Public Use
  Company Number: FR-SANOFI-AVENTIS-2012SA025922

PATIENT
  Age: 64 Year
  Sex: Female

DRUGS (13)
  1. OFORTA [Suspect]
     Indication: MYELODYSPLASTIC SYNDROME
     Route: 048
     Dates: start: 20120303, end: 20120307
  2. OFORTA [Suspect]
     Indication: BONE MARROW CONDITIONING REGIMEN
     Route: 048
     Dates: start: 20120303, end: 20120307
  3. ANTI-THYMOCYTE GLOBULIN RABBIT NOS [Suspect]
     Indication: MYELODYSPLASTIC SYNDROME
     Dosage: DOSE:7 UNIT(S)
     Dates: start: 20120306, end: 20120306
  4. BUSULFAN [Suspect]
     Indication: BONE MARROW CONDITIONING REGIMEN
     Dosage: DOSE:6 MILLIGRAM(S)/MILLILITRE
     Route: 065
     Dates: start: 20120304, end: 20120306
  5. BUSULFAN [Suspect]
     Indication: MYELODYSPLASTIC SYNDROME
     Dosage: DOSE:6 MILLIGRAM(S)/MILLILITRE
     Route: 065
     Dates: start: 20120304, end: 20120306
  6. ANTI-THYMOCYTE GLOBULIN RABBIT NOS [Suspect]
     Indication: BONE MARROW CONDITIONING REGIMEN
     Dosage: DOSE:7 UNIT(S)
     Dates: start: 20120306, end: 20120306
  7. GENTAMICIN [Concomitant]
     Dates: start: 20120301, end: 20120302
  8. NOXAFIL [Concomitant]
     Dates: start: 20120301, end: 20120302
  9. BACTRIM [Concomitant]
     Dates: start: 20120301, end: 20120307
  10. SOLU-MEDROL [Concomitant]
     Dates: start: 20120305, end: 20120307
  11. VALACICLOVIR [Concomitant]
     Dates: start: 20120301, end: 20120302
  12. COLIMYCINE [Concomitant]
     Dates: start: 20120301, end: 20120302
  13. MYCAMINE [Concomitant]
     Dates: start: 20120302, end: 20120307

REACTIONS (3)
  - HYPERTHERMIA [None]
  - CYTOLYTIC HEPATITIS [None]
  - HYPERTENSION [None]
